FAERS Safety Report 7997783-0 (Version None)
Quarter: 2011Q4

REPORT INFORMATION
  Report Type: 
  Country: None (occurrence: None)
  Receive Date: 20111221
  Receipt Date: 20111013
  Transmission Date: 20120403
  Serious: No
  Sender: FDA-Public Use
  Company Number: US-PFIZER INC-K201101216

PATIENT
  Age: 31 Year
  Sex: Female

DRUGS (1)
  1. EPIPEN [Suspect]
     Indication: ANAPHYLACTIC REACTION
     Dosage: 0.3 MG, SINGLE
     Route: 030
     Dates: start: 20110814, end: 20110814

REACTIONS (1)
  - DRUG EFFECT DELAYED [None]
